FAERS Safety Report 20887560 (Version 1)
Quarter: 2022Q2

REPORT INFORMATION
  Report Type: Spontaneous
  Country: FR (occurrence: FR)
  Receive Date: 20220528
  Receipt Date: 20220528
  Transmission Date: 20220721
  Serious: Yes (Other)
  Sender: FDA-Public Use
  Company Number: FR-TEVA-2022-FR-2032078

PATIENT
  Age: 84 Year
  Sex: Male
  Weight: 80 kg

DRUGS (4)
  1. BISOPROLOL [Suspect]
     Active Substance: BISOPROLOL
     Indication: Cardiac disorder
     Dosage: 2.5 MILLIGRAM DAILY; DESINTEGRATED IN THE MOUTH
     Route: 048
     Dates: start: 20200819
  2. LERCANIDIPINE [Concomitant]
     Active Substance: LERCANIDIPINE
     Dosage: .5 DF IN THE MORNING AND 1 DF IN THE EVENING, STARTED BEFORE 19-AUG-2020
     Route: 048
  3. ASPIRIN [Concomitant]
     Active Substance: ASPIRIN
     Dosage: 1 DF IN THE MORNING, STARTED BEFORE 19-AUG-2020
     Route: 048
  4. HERBALS\SAW PALMETTO [Concomitant]
     Active Substance: HERBALS\SAW PALMETTO
     Dosage: 1 CAPSULE IN THE MORNING AND IN THE EVENING, STARTED BEFORE 19-AUG-2020
     Route: 048

REACTIONS (3)
  - Heart rate increased [Recovered/Resolved]
  - Drug ineffective [Recovered/Resolved]
  - Product solubility abnormal [Unknown]
